FAERS Safety Report 4273112-3 (Version None)
Quarter: 2004Q1

REPORT INFORMATION
  Report Type: 
  Country: None (occurrence: None)
  Receive Date: 20040116
  Receipt Date: 20031126
  Transmission Date: 20041129
  Serious: Yes (Other)
  Sender: FDA-Public Use
  Company Number: US-GLAXOSMITHKLINE-A0441187A

PATIENT
  Age: 65 Year
  Sex: Female

DRUGS (2)
  1. LOTRONEX [Suspect]
     Dosage: 1MG PER DAY
     Route: 048
     Dates: start: 20031023, end: 20031027
  2. PREMARIN [Concomitant]

REACTIONS (5)
  - ABDOMINAL PAIN LOWER [None]
  - COLITIS ISCHAEMIC [None]
  - CONSTIPATION [None]
  - HAEMATOCHEZIA [None]
  - WEIGHT DECREASED [None]
